FAERS Safety Report 5779641-5 (Version None)
Quarter: 2008Q2

REPORT INFORMATION
  Report Type: 
  Country: None (occurrence: None)
  Receive Date: 20080619
  Receipt Date: 20080613
  Transmission Date: 20081010
  Serious: Yes (Hospitalization)
  Sender: FDA-Public Use
  Company Number: GB-ABBOTT-08P-167-0457423-00

PATIENT
  Age: 22 Year
  Sex: Male

DRUGS (6)
  1. VALPROATE SODIUM [Suspect]
     Indication: SCHIZOPHRENIA
     Dates: start: 20050601
  2. OLANZAPINE [Suspect]
     Indication: SCHIZOPHRENIA
     Dates: start: 20050601
  3. OLANZAPINE [Suspect]
  4. ARIPIPRAZOLE [Suspect]
     Indication: SCHIZOPHRENIA
     Dates: start: 20060501
  5. ARIPIPRAZOLE [Suspect]
  6. ARIPIPRAZOLE [Suspect]

REACTIONS (5)
  - MENTAL DISORDER [None]
  - SEDATION [None]
  - TREATMENT NONCOMPLIANCE [None]
  - WEIGHT DECREASED [None]
  - WEIGHT INCREASED [None]
